FAERS Safety Report 21269855 (Version 3)
Quarter: 2022Q4

REPORT INFORMATION
  Report Type: Report from Study
  Country: CO (occurrence: CO)
  Receive Date: 20220830
  Receipt Date: 20221207
  Transmission Date: 20230112
  Serious: Yes (Hospitalization, Other)
  Sender: FDA-Public Use
  Company Number: CO-NOVARTISPH-NVSC2022CO194860

PATIENT
  Sex: Female

DRUGS (4)
  1. KISQALI [Suspect]
     Active Substance: RIBOCICLIB
     Indication: Hormone receptor positive HER2 negative breast cancer
     Dosage: 600 MG, QD
     Route: 048
     Dates: start: 20220825
  2. KISQALI [Suspect]
     Active Substance: RIBOCICLIB
     Dosage: UNK
     Route: 048
  3. FEMARA [Suspect]
     Active Substance: LETROZOLE
     Indication: Hormone receptor positive HER2 negative breast cancer
     Dosage: UNK
     Route: 048
     Dates: start: 20220825
  4. FEMARA [Suspect]
     Active Substance: LETROZOLE
     Dosage: UNK
     Route: 048

REACTIONS (16)
  - Dysphagia [Unknown]
  - Myasthenia gravis [Unknown]
  - Metastases to central nervous system [Unknown]
  - Metastases to spinal cord [Unknown]
  - Condition aggravated [Unknown]
  - Ischaemia [Unknown]
  - Malaise [Unknown]
  - Dysarthria [Unknown]
  - Indifference [Unknown]
  - Tinnitus [Unknown]
  - Gait disturbance [Unknown]
  - Fatigue [Unknown]
  - Asthenia [Unknown]
  - Dizziness [Unknown]
  - Nausea [Unknown]
  - Vomiting [Unknown]
